FAERS Safety Report 7370486-1 (Version None)
Quarter: 2011Q1

REPORT INFORMATION
  Report Type: 
  Country: None (occurrence: None)
  Receive Date: 20110323
  Receipt Date: 20110311
  Transmission Date: 20110831
  Serious: Yes (Hospitalization)
  Sender: FDA-Public Use
  Company Number: PHHY2011AR20587

PATIENT
  Age: 44 Year
  Sex: Male

DRUGS (2)
  1. SANDIMMUNE [Suspect]
     Dosage: 200 MG
     Dates: start: 20050623
  2. ENOXAPARIN [Concomitant]

REACTIONS (5)
  - CEREBRAL ISCHAEMIA [None]
  - FACIAL PARESIS [None]
  - PORTAL VEIN THROMBOSIS [None]
  - CEREBROVASCULAR ACCIDENT [None]
  - MONOPARESIS [None]
